FAERS Safety Report 8357666-3 (Version None)
Quarter: 2012Q2

REPORT INFORMATION
  Report Type: 
  Country: None (occurrence: None)
  Receive Date: 20120514
  Receipt Date: 20120501
  Transmission Date: 20120825
  Serious: No
  Sender: FDA-Public Use
  Company Number: US-BAYER-2012-045365

PATIENT

DRUGS (2)
  1. NAPROXEN SODIUM [Suspect]
     Route: 048
  2. DIURETICS [Concomitant]

REACTIONS (2)
  - OEDEMA PERIPHERAL [None]
  - LIMB DISCOMFORT [None]
